FAERS Safety Report 24616704 (Version 2)
Quarter: 2024Q4

REPORT INFORMATION
  Report Type: Report from Study
  Country: CA (occurrence: CA)
  Receive Date: 20241114
  Receipt Date: 20241115
  Transmission Date: 20250115
  Serious: Yes (Hospitalization)
  Sender: SANDOZ
  Company Number: CA-SANDOZ-SDZ2024CA093139

PATIENT
  Sex: Female

DRUGS (2)
  1. HYRIMOZ [Suspect]
     Active Substance: ADALIMUMAB-ADAZ
     Dosage: 40 MG, Q2W
     Route: 058
     Dates: start: 20241108
  2. HYRIMOZ [Suspect]
     Active Substance: ADALIMUMAB-ADAZ
     Indication: Uveitis
     Dosage: 80 MG (80 MG WEEK 0, 40 MG WEEK 2, THEN 40 MG Q2W)
     Route: 058
     Dates: start: 20241024

REACTIONS (6)
  - Hospitalisation [Unknown]
  - Face oedema [Unknown]
  - Erythema of eyelid [Unknown]
  - Gallbladder disorder [Recovering/Resolving]
  - Eyelid oedema [Unknown]
  - Conjunctivitis [Unknown]

NARRATIVE: CASE EVENT DATE: 20240101
